FAERS Safety Report 13546296 (Version 1)
Quarter: 2017Q2

REPORT INFORMATION
  Report Type: Spontaneous
  Country: US (occurrence: US)
  Receive Date: 20170515
  Receipt Date: 20170515
  Transmission Date: 20170830
  Serious: Yes (Other)
  Sender: FDA-Public Use
  Company Number: US-SUNOVION-2017SUN001447

PATIENT
  Sex: Male
  Weight: 228.4 kg

DRUGS (2)
  1. ONFI [Concomitant]
     Active Substance: CLOBAZAM
     Indication: SEIZURE
     Dosage: UNK
  2. APTIOM [Suspect]
     Active Substance: ESLICARBAZEPINE ACETATE
     Indication: EPILEPSY
     Dosage: 800 MG, UNK
     Route: 048
     Dates: start: 201701

REACTIONS (4)
  - Swelling face [Unknown]
  - Dyspnoea [Unknown]
  - Lip swelling [Unknown]
  - Angioedema [Recovered/Resolved]
